FAERS Safety Report 4534016-1 (Version None)
Quarter: 2004Q4

REPORT INFORMATION
  Report Type: 
  Country: None (occurrence: None)
  Receive Date: 20041221
  Receipt Date: 20041221
  Transmission Date: 20050328
  Serious: Yes (Other)
  Sender: FDA-Public Use
  Company Number: None

PATIENT
  Age: 58 Year
  Sex: Female

DRUGS (10)
  1. OMEPRAZOLE [Suspect]
     Indication: GASTROOESOPHAGEAL REFLUX DISEASE
     Dosage: 1 CAPSULE DAILY  (STARTED GENERIC 10 DAYS AGO)
  2. SINGULAIR [Concomitant]
  3. FLONASE [Concomitant]
  4. ZYRTEC [Concomitant]
  5. SEREVENT [Concomitant]
  6. IPRATROPIUM BROMIDE [Concomitant]
  7. VAGIFEM [Concomitant]
  8. ESTRATEST H.S. [Concomitant]
  9. SYNTHROID [Concomitant]
  10. PIROXICAM [Concomitant]

REACTIONS (2)
  - DRUG INEFFECTIVE [None]
  - PHARMACEUTICAL PRODUCT COMPLAINT [None]
